FAERS Safety Report 7749208-8 (Version None)
Quarter: 2011Q3

REPORT INFORMATION
  Report Type: 
  Country: None (occurrence: None)
  Receive Date: 20110909
  Receipt Date: 20110826
  Transmission Date: 20111222
  Serious: Yes (Other)
  Sender: FDA-Public Use
  Company Number: 1000023474

PATIENT
  Age: 21 Year
  Sex: Female
  Weight: 68 kg

DRUGS (1)
  1. ESCITALOPRAM [Suspect]
     Indication: DEPRESSION
     Dosage: 10 MG (10 MG, 1 IN 1 D)
     Dates: start: 20110624, end: 20110627

REACTIONS (3)
  - NAUSEA [None]
  - MENSTRUAL DISORDER [None]
  - METRORRHAGIA [None]
